FAERS Safety Report 5426308-9 (Version None)
Quarter: 2007Q3

REPORT INFORMATION
  Report Type: 
  Country: None (occurrence: None)
  Receive Date: 20070827
  Receipt Date: 20070814
  Transmission Date: 20080115
  Serious: Yes (Hospitalization)
  Sender: FDA-Public Use
  Company Number: GB-ROCHE-511288

PATIENT
  Age: 56 Year
  Sex: Female
  Weight: 80.6 kg

DRUGS (14)
  1. ORLISTAT [Suspect]
     Indication: OBESITY
     Route: 048
     Dates: start: 20070410
  2. ASPIRIN [Suspect]
     Indication: HEART DISEASE CONGENITAL
     Route: 048
  3. RAMIPRIL [Concomitant]
     Indication: HYPERTENSION
     Route: 048
  4. DIHYDROCODEINE BITARTRATE INJ [Concomitant]
     Indication: BACK PAIN
     Route: 048
  5. GTN-S [Concomitant]
     Indication: ANGINA PECTORIS
     Dosage: PRN
     Route: 048
  6. SENNA [Concomitant]
  7. ATORVASTATIN CALCIUM [Concomitant]
  8. LANSOPRAZOLE [Concomitant]
  9. ALFA CALCIDOL [Concomitant]
  10. TILDIEM RETARD [Concomitant]
     Indication: HEART DISEASE CONGENITAL
  11. INSULIN [Concomitant]
     Dosage: VARIABLE DOSAGE
     Route: 058
  12. CACIT D3 [Concomitant]
     Dosage: DOSAGE REPORTED AS 2 OD
  13. IPRATROPIUM BROMIDE [Concomitant]
     Route: 055
  14. QVAR 40 [Concomitant]
     Route: 055

REACTIONS (2)
  - EPISTAXIS [None]
  - FAECES DISCOLOURED [None]
